FAERS Safety Report 13096381 (Version 1)
Quarter: 2017Q1

REPORT INFORMATION
  Report Type: Spontaneous
  Country: US (occurrence: US)
  Receive Date: 20170106
  Receipt Date: 20170106
  Transmission Date: 20170428
  Serious: Yes (Hospitalization)
  Sender: FDA-Public Use
  Company Number: None

PATIENT
  Age: 76 Year
  Sex: Male
  Weight: 77.3 kg

DRUGS (1)
  1. TRAZODONE [Suspect]
     Active Substance: TRAZODONE HYDROCHLORIDE
     Indication: DEPRESSION
     Route: 048
     Dates: start: 20160907, end: 20160921

REACTIONS (6)
  - Asthenia [None]
  - Decreased appetite [None]
  - Hypoglycaemia [None]
  - Mental status changes [None]
  - Dementia [None]
  - Confusional state [None]

NARRATIVE: CASE EVENT DATE: 20160923
